FAERS Safety Report 4838885-7 (Version None)
Quarter: 2005Q4

REPORT INFORMATION
  Report Type: 
  Country: None (occurrence: None)
  Receive Date: 20051129
  Receipt Date: 20050822
  Transmission Date: 20060501
  Serious: No
  Sender: FDA-Public Use
  Company Number: US-GLAXOSMITHKLINE-A0571255A

PATIENT
  Age: 73 Year
  Sex: Female

DRUGS (3)
  1. LOTRONEX [Suspect]
     Indication: IRRITABLE BOWEL SYNDROME
     Dosage: 2MG TWICE PER DAY
     Route: 048
     Dates: start: 20050808
  2. LASIX [Concomitant]
  3. METOPROLOL [Concomitant]

REACTIONS (1)
  - ABDOMINAL PAIN [None]
